FAERS Safety Report 6804024-6 (Version None)
Quarter: 2010Q2

REPORT INFORMATION
  Report Type: 
  Country: None (occurrence: None)
  Receive Date: 20100628
  Receipt Date: 20060912
  Transmission Date: 20101027
  Serious: No
  Sender: FDA-Public Use
  Company Number: US-PFIZER INC-2006110902

PATIENT
  Sex: Female
  Weight: 53.52 kg

DRUGS (5)
  1. SUTENT [Suspect]
     Indication: RENAL CANCER METASTATIC
     Dosage: CYCLIC, 4WEEKS ON, 2WEEKS OFF
     Dates: start: 20060701, end: 20060908
  2. LISINOPRIL [Concomitant]
  3. CALCIUM CARBONATE [Concomitant]
  4. MORPHINE [Concomitant]
  5. SENOKOT [Concomitant]

REACTIONS (2)
  - ALOPECIA [None]
  - ORAL PAIN [None]
